FAERS Safety Report 10661564 (Version 2)
Quarter: 2014Q4

REPORT INFORMATION
  Report Type: Spontaneous
  Country: US (occurrence: None)
  Receive Date: 20141216
  Receipt Date: 20141222
  Transmission Date: 20150529
  Serious: Yes (Hospitalization)
  Sender: FDA-Public Use
  Company Number: 2014-US-016294

PATIENT
  Sex: Female

DRUGS (1)
  1. XYREM [Suspect]
     Active Substance: SODIUM OXYBATE
     Indication: NARCOLEPSY
     Dosage: FIRST DOSE
     Route: 048
     Dates: start: 201305, end: 2013

REACTIONS (4)
  - Hospitalisation [None]
  - Surgery [None]
  - Drug dose omission [None]
  - Procedural pain [None]

NARRATIVE: CASE EVENT DATE: 2014
